FAERS Safety Report 13949913 (Version 1)
Quarter: 2017Q3

REPORT INFORMATION
  Report Type: Spontaneous
  Country: US (occurrence: US)
  Receive Date: 20170908
  Receipt Date: 20170908
  Transmission Date: 20171128
  Serious: Yes (Death, Hospitalization)
  Sender: FDA-Public Use
  Company Number: US-ROCHE-1135767

PATIENT
  Sex: Female

DRUGS (2)
  1. RITUXAN [Suspect]
     Active Substance: RITUXIMAB
     Indication: B-CELL LYMPHOMA
     Route: 065
  2. RITUXAN [Suspect]
     Active Substance: RITUXIMAB
     Indication: HYPOGAMMAGLOBULINAEMIA

REACTIONS (15)
  - Dyspepsia [Recovered/Resolved]
  - Vomiting [Recovered/Resolved]
  - Tenderness [Unknown]
  - Cough [Recovered/Resolved]
  - Pneumonia viral [Unknown]
  - Disease progression [Fatal]
  - Pyrexia [Unknown]
  - Urinary retention [Recovered/Resolved]
  - Asthenia [Unknown]
  - Blood pressure increased [Unknown]
  - Nausea [Recovered/Resolved]
  - Diarrhoea [Recovered/Resolved]
  - Fatigue [Unknown]
  - Muscle spasms [Unknown]
  - Energy increased [Recovered/Resolved]
